FAERS Safety Report 6998520-9 (Version None)
Quarter: 2010Q3

REPORT INFORMATION
  Report Type: 
  Country: None (occurrence: None)
  Receive Date: 20100920
  Receipt Date: 20100330
  Transmission Date: 20110219
  Serious: Yes (Hospitalization)
  Sender: FDA-Public Use
  Company Number: US-ASTRAZENECA-2006UW06560

PATIENT
  Age: 19629 Day
  Sex: Female
  Weight: 45.4 kg

DRUGS (14)
  1. SEROQUEL [Suspect]
     Indication: INSOMNIA
     Dosage: 100 MG TO 400 MG
     Route: 048
     Dates: start: 20040301
  2. SEROQUEL [Suspect]
     Indication: DEPRESSION
     Dosage: 100 MG TO 400 MG
     Route: 048
     Dates: start: 20040301
  3. SEROQUEL [Suspect]
     Route: 048
     Dates: start: 20040301
  4. SEROQUEL [Suspect]
     Route: 048
     Dates: start: 20040301
  5. SEROQUEL [Suspect]
     Dosage: 100 MG TO 200 MG
     Route: 048
     Dates: start: 20081024
  6. SEROQUEL [Suspect]
     Dosage: 100 MG TO 200 MG
     Route: 048
     Dates: start: 20081024
  7. ZYPREXA [Concomitant]
     Dates: start: 19980101, end: 20020101
  8. METHADONE [Concomitant]
     Dates: start: 20020101
  9. CLONIDINE [Concomitant]
     Dates: start: 20090611
  10. ENALAPRIL [Concomitant]
     Dates: start: 20090611
  11. ALPRAZOLAM [Concomitant]
     Dates: start: 20090423
  12. ZOLOFT [Concomitant]
     Dates: start: 20031001
  13. LORAZEPAM [Concomitant]
     Dates: start: 20040301
  14. LEXAPRO [Concomitant]
     Dates: start: 20040301

REACTIONS (2)
  - PANCREATITIS [None]
  - PANCREATITIS ACUTE [None]
